FAERS Safety Report 19398287 (Version 1)
Quarter: 2021Q2

REPORT INFORMATION
  Report Type: Spontaneous
  Country: US (occurrence: US)
  Receive Date: 20210609
  Receipt Date: 20210609
  Transmission Date: 20210717
  Serious: No
  Sender: FDA-Public Use
  Company Number: None

PATIENT
  Age: 51 Year
  Sex: Female

DRUGS (1)
  1. DUPIXENT [Suspect]
     Active Substance: DUPILUMAB
     Indication: DERMATITIS ATOPIC
     Route: 058
     Dates: start: 202105

REACTIONS (5)
  - Product distribution issue [None]
  - Product outer packaging issue [None]
  - Product storage error [None]
  - Product quality issue [None]
  - Product packaging issue [None]

NARRATIVE: CASE EVENT DATE: 20210607
